FAERS Safety Report 9021193 (Version 1)
Quarter: 2013Q1

REPORT INFORMATION
  Report Type: Spontaneous
  Country: US (occurrence: US)
  Receive Date: 20130119
  Receipt Date: 20130119
  Transmission Date: 20140127
  Serious: Yes (Death)
  Sender: FDA-Public Use
  Company Number: US-UCBSA-075719

PATIENT
  Age: 36 Year
  Sex: Male

DRUGS (6)
  1. ALPRAZOLAM [Suspect]
     Route: 048
  2. MORPHINE [Suspect]
     Route: 048
  3. TRAMADOL [Suspect]
     Route: 048
  4. RISPERIDONE [Suspect]
     Route: 048
  5. QUETIAPINE [Suspect]
     Route: 048
  6. HYDROMORPHONE [Suspect]
     Route: 048

REACTIONS (1)
  - Toxicity to various agents [Fatal]
